FAERS Safety Report 6496897-4 (Version None)
Quarter: 2009Q4

REPORT INFORMATION
  Report Type: 
  Country: None (occurrence: None)
  Receive Date: 20091215
  Receipt Date: 20091207
  Transmission Date: 20100525
  Serious: Yes (Hospitalization, Other)
  Sender: FDA-Public Use
  Company Number: US-BIOGENIDEC-2009BI011445

PATIENT
  Age: 59 Year
  Sex: Female

DRUGS (1)
  1. AVONEX [Suspect]
     Indication: MULTIPLE SCLEROSIS
     Route: 030
     Dates: start: 20030220

REACTIONS (6)
  - ABDOMINAL PAIN UPPER [None]
  - AORTIC ANEURYSM [None]
  - BLOOD PRESSURE DECREASED [None]
  - DIVERTICULUM [None]
  - INTESTINAL OBSTRUCTION [None]
  - SCAR [None]
